FAERS Safety Report 10721823 (Version 1)
Quarter: 2015Q1

REPORT INFORMATION
  Report Type: Spontaneous
  Country: US (occurrence: US)
  Receive Date: 20150119
  Receipt Date: 20150119
  Transmission Date: 20150721
  Serious: Yes (Death)
  Sender: FDA-Public Use
  Company Number: US-BAYER-2015-005532

PATIENT
  Age: 28 Year
  Sex: Male

DRUGS (3)
  1. DINITROPHENOL [Suspect]
     Active Substance: 2,4-DINITROPHENOL
     Indication: WEIGHT DECREASED
     Dosage: 4 G, ONCE
     Route: 048
  2. DINITROPHENOL [Suspect]
     Active Substance: 2,4-DINITROPHENOL
     Indication: WEIGHT DECREASED
     Dosage: DAILY DOSE 200 MG
  3. DIPHENHYDRAMINE HYDROCHLORIDE. [Suspect]
     Active Substance: DIPHENHYDRAMINE HYDROCHLORIDE
     Route: 048

REACTIONS (4)
  - Cardiac arrest [Fatal]
  - Agitation [Fatal]
  - Hyperhidrosis [Fatal]
  - Toxicity to various agents [Fatal]
